FAERS Safety Report 11330716 (Version 1)
Quarter: 2015Q3

REPORT INFORMATION
  Report Type: Spontaneous
  Country: US (occurrence: None)
  Receive Date: 20150730
  Receipt Date: 20150730
  Transmission Date: 20151125
  Serious: Yes (Hospitalization, Disabling, Other)
  Sender: FDA-Public Use
  Company Number: None

PATIENT
  Age: 55 Year
  Sex: Female
  Weight: 70.31 kg

DRUGS (9)
  1. NORCO [Concomitant]
     Active Substance: ACETAMINOPHEN\HYDROCODONE BITARTRATE
  2. PROBIOTICS [Concomitant]
     Active Substance: PROBIOTICS NOS
  3. OMEPRAZOLE 20 MG SANDOZ [Suspect]
     Active Substance: OMEPRAZOLE
     Indication: DYSPEPSIA
     Route: 048
     Dates: start: 20111101, end: 20150701
  4. PROMETHAZINE [Concomitant]
     Active Substance: PROMETHAZINE\PROMETHAZINE HYDROCHLORIDE
  5. FENOFIBRATE. [Concomitant]
     Active Substance: FENOFIBRATE
  6. MULIT VITAMIN [Concomitant]
  7. DIAZAPAM [Concomitant]
  8. POTASSIUM [Concomitant]
     Active Substance: POTASSIUM
  9. OMEPRAZOLE 20 MG SANDOZ [Suspect]
     Active Substance: OMEPRAZOLE
     Indication: VOCAL CORD POLYPECTOMY
     Route: 048
     Dates: start: 20111101, end: 20150701

REACTIONS (11)
  - Dry mouth [None]
  - Abdominal distension [None]
  - Abdominal pain [None]
  - Hair growth abnormal [None]
  - Nausea [None]
  - Diarrhoea [None]
  - Insomnia [None]
  - Dysphonia [None]
  - Muscle spasms [None]
  - Infection [None]
  - Fracture [None]

NARRATIVE: CASE EVENT DATE: 20150713
